FAERS Safety Report 14380211 (Version 1)
Quarter: 2018Q1

REPORT INFORMATION
  Report Type: Spontaneous
  Country: FR (occurrence: FR)
  Receive Date: 20180112
  Receipt Date: 20180112
  Transmission Date: 20180509
  Serious: Yes (Other)
  Sender: FDA-Public Use
  Company Number: FR-AUROBINDO-AUR-APL-2018-001533

PATIENT
  Sex: Female
  Weight: 150 kg

DRUGS (12)
  1. IMOVANE [Suspect]
     Active Substance: ZOPICLONE
     Dosage: 0.5 DF, ONCE A DAY
  2. COTAREG [Suspect]
     Active Substance: HYDROCHLOROTHIAZIDE\VALSARTAN
     Dates: start: 201707
  3. LEVOTHYROX [Suspect]
     Active Substance: LEVOTHYROXINE
     Indication: HYPOTHYROIDISM
     Dosage: 1 DF, ONCE A DAY
     Route: 048
     Dates: start: 20170615, end: 20170906
  4. AMLOR [Suspect]
     Active Substance: AMLODIPINE BESYLATE
  5. SEROPLEX [Suspect]
     Active Substance: ESCITALOPRAM OXALATE
     Dosage: 1 DF, ONCE A DAY
     Dates: start: 20170908
  6. VOLTARENE (DICLOFENAC SODIUM) [Suspect]
     Active Substance: DICLOFENAC SODIUM
     Dosage: 2X/SEMAINE ()
  7. ENDOTELON [Suspect]
     Active Substance: HERBALS
     Dosage: 2 ? 3 CP/J ()
  8. ATENOLOL. [Suspect]
     Active Substance: ATENOLOL
     Dosage: 50 ?G, ONCE A DAY
  9. ZYLORIC [Suspect]
     Active Substance: ALLOPURINOL
     Dosage: 1 DF, ONCE A DAY
  10. SIMVASTATINE [Suspect]
     Active Substance: SIMVASTATIN
     Dosage: 20 MG, ONCE A DAY
  11. SERESTA [Suspect]
     Active Substance: OXAZEPAM
     Dosage: 12.5 MG, ONCE A DAY
  12. UVEDOSE [Suspect]
     Active Substance: CHOLECALCIFEROL

REACTIONS (20)
  - Fatigue [Recovering/Resolving]
  - Blood thyroid stimulating hormone [Not Recovered/Not Resolved]
  - Feeling hot [Not Recovered/Not Resolved]
  - Abdominal pain [Not Recovered/Not Resolved]
  - Pruritus [Not Recovered/Not Resolved]
  - Amnesia [Not Recovered/Not Resolved]
  - Diarrhoea [Not Recovered/Not Resolved]
  - Insomnia [Not Recovered/Not Resolved]
  - Myalgia [Not Recovered/Not Resolved]
  - Vision blurred [Not Recovered/Not Resolved]
  - Arthralgia [Not Recovered/Not Resolved]
  - Vertigo [Recovering/Resolving]
  - Dry skin [Not Recovered/Not Resolved]
  - Muscle spasms [Not Recovered/Not Resolved]
  - Paraesthesia [Not Recovered/Not Resolved]
  - Feeling jittery [Not Recovered/Not Resolved]
  - Irritability [Not Recovered/Not Resolved]
  - Eye burns [Not Recovered/Not Resolved]
  - Nasal dryness [Not Recovered/Not Resolved]
  - Urticaria [Not Recovered/Not Resolved]

NARRATIVE: CASE EVENT DATE: 201507
